FAERS Safety Report 20976943 (Version 1)
Quarter: 2022Q2

REPORT INFORMATION
  Report Type: Spontaneous
  Country: US (occurrence: None)
  Receive Date: 20220617
  Receipt Date: 20220617
  Transmission Date: 20220721
  Serious: Yes (Life-Threatening, Hospitalization, Other)
  Sender: FDA-Public Use
  Company Number: None

PATIENT
  Age: 64 Year
  Sex: Female
  Weight: 61.4 kg

DRUGS (2)
  1. PRIVIGEN [Suspect]
     Active Substance: HUMAN IMMUNOGLOBULIN G
     Indication: Product used for unknown indication
     Dosage: OTHER FREQUENCY : ONE TIME DOSE;?
     Route: 042
     Dates: start: 20220506, end: 20220506
  2. PREDNISONE [Concomitant]
     Active Substance: PREDNISONE
     Dates: start: 20190603

REACTIONS (5)
  - Respiratory distress [None]
  - N-terminal prohormone brain natriuretic peptide increased [None]
  - Chest X-ray abnormal [None]
  - Lung opacity [None]
  - Hypoxia [None]

NARRATIVE: CASE EVENT DATE: 20220506
